FAERS Safety Report 14651854 (Version 1)
Quarter: 2018Q1

REPORT INFORMATION
  Report Type: Spontaneous
  Country: ZA (occurrence: ZA)
  Receive Date: 20180317
  Receipt Date: 20180317
  Transmission Date: 20180509
  Serious: Yes (Hospitalization)
  Sender: FDA-Public Use
  Company Number: ZA-AUROBINDO-AUR-APL-2018-011642

PATIENT
  Age: 43 Year
  Sex: Male

DRUGS (2)
  1. RAZOBIN 4.5G INJECTION [Suspect]
     Active Substance: PIPERACILLIN SODIUM\TAZOBACTAM SODIUM
     Indication: ENTEROBACTER INFECTION
  2. RAZOBIN 4.5G INJECTION [Suspect]
     Active Substance: PIPERACILLIN SODIUM\TAZOBACTAM SODIUM
     Indication: PNEUMONIA KLEBSIELLA
     Dosage: 9G 12 HOURS INFUSION
     Route: 042
     Dates: start: 20180124, end: 20180201

REACTIONS (1)
  - Drug ineffective [Unknown]

NARRATIVE: CASE EVENT DATE: 20180102
